FAERS Safety Report 8198113-4 (Version None)
Quarter: 2012Q1

REPORT INFORMATION
  Report Type: 
  Country: None (occurrence: None)
  Receive Date: 20120309
  Receipt Date: 20120301
  Transmission Date: 20120608
  Serious: Yes (Other)
  Sender: FDA-Public Use
  Company Number: NL-JNJFOC-20120300338

PATIENT
  Age: 43 Year
  Sex: Male

DRUGS (1)
  1. TOPAMAX [Suspect]
     Indication: EPILEPSY
     Route: 048
     Dates: start: 20111201, end: 20120228

REACTIONS (3)
  - PSYCHOMOTOR HYPERACTIVITY [None]
  - DELIRIUM [None]
  - PSYCHOTIC DISORDER [None]
